FAERS Safety Report 8212266-0 (Version None)
Quarter: 2012Q1

REPORT INFORMATION
  Report Type: 
  Country: None (occurrence: None)
  Receive Date: 20120315
  Receipt Date: 20120228
  Transmission Date: 20120608
  Serious: Yes (Life-Threatening, Hospitalization)
  Sender: FDA-Public Use
  Company Number: US-ROCHE-1040742

PATIENT
  Sex: Male
  Weight: 100.33 kg

DRUGS (6)
  1. RIBAVIRIN [Suspect]
     Indication: HEPATITIS C
     Route: 048
     Dates: start: 20110901, end: 20120201
  2. INCIVEK [Suspect]
     Indication: HEPATITIS C
     Route: 048
     Dates: start: 20110901, end: 20120201
  3. NPH INSULIN [Concomitant]
     Indication: DIABETES MELLITUS
     Dosage: 70/80 40 U
     Route: 058
  4. PEGASYS [Suspect]
     Indication: HEPATITIS C
     Route: 058
     Dates: start: 20110901, end: 20120201
  5. LISINOPRIL [Concomitant]
     Indication: HYPERTENSION
     Route: 048
  6. RANITIDINE [Concomitant]
     Indication: GASTROOESOPHAGEAL REFLUX DISEASE
     Route: 048

REACTIONS (3)
  - THROMBOSIS [None]
  - PNEUMONIA STREPTOCOCCAL [None]
  - ASTHENIA [None]
